FAERS Safety Report 16223053 (Version 2)
Quarter: 2019Q2

REPORT INFORMATION
  Report Type: Spontaneous
  Country: US (occurrence: US)
  Receive Date: 20190422
  Receipt Date: 20190612
  Transmission Date: 20190711
  Serious: No
  Sender: FDA-Public Use
  Company Number: US-SA-2019SA108847

PATIENT
  Age: 67 Year
  Sex: Male

DRUGS (1)
  1. PRALUENT [Suspect]
     Active Substance: ALIROCUMAB
     Indication: BLOOD CHOLESTEROL INCREASED
     Dosage: 75 MG, QOW
     Dates: start: 201904

REACTIONS (8)
  - Dyspnoea [Unknown]
  - Musculoskeletal stiffness [Not Recovered/Not Resolved]
  - Nasopharyngitis [Unknown]
  - Pain [Unknown]
  - Unevaluable event [Not Recovered/Not Resolved]
  - Dysphonia [Unknown]
  - Rhinorrhoea [Not Recovered/Not Resolved]
  - Throat clearing [Not Recovered/Not Resolved]

NARRATIVE: CASE EVENT DATE: 2019
